FAERS Safety Report 9722926 (Version 1)
Quarter: 2013Q4

REPORT INFORMATION
  Report Type: Spontaneous
  Country: US (occurrence: None)
  Receive Date: 20131126
  Receipt Date: 20131126
  Transmission Date: 20140711
  Serious: Yes (Other)
  Sender: FDA-Public Use
  Company Number: ADE13-030

PATIENT
  Age: 61 Year
  Sex: Female
  Weight: 53 kg

DRUGS (5)
  1. HEPARIN SODIUM [Suspect]
     Indication: ARTERIAL CATHETERISATION
     Dosage: 9000 U TITRATED IV
     Dates: start: 20131029, end: 20131029
  2. ASPIRIN [Concomitant]
  3. CLOPIDOGREL [Concomitant]
  4. MIDAZOLAM [Concomitant]
  5. NITROGLYCERIN [Concomitant]

REACTIONS (1)
  - Drug effect decreased [None]
